FAERS Safety Report 11337142 (Version 3)
Quarter: 2015Q4

REPORT INFORMATION
  Report Type: Spontaneous
  Country: FI (occurrence: FI)
  Receive Date: 20150804
  Receipt Date: 20151014
  Transmission Date: 20160304
  Serious: Yes (Other)
  Sender: FDA-Public Use
  Company Number: PHHY2015FI091434

PATIENT
  Sex: Female

DRUGS (4)
  1. SANDIMMUN NEORAL [Suspect]
     Active Substance: CYCLOSPORINE
     Indication: ANGIOEDEMA
  2. SANDIMMUN NEORAL [Suspect]
     Active Substance: CYCLOSPORINE
     Indication: URTICARIA
     Dosage: 100 MG, BID (100 MG PLUS 100 MG)
     Route: 065
     Dates: start: 2012, end: 2014
  3. PREDNISOLONE. [Suspect]
     Active Substance: PREDNISOLONE
     Indication: ANGIOEDEMA
  4. PREDNISOLONE. [Suspect]
     Active Substance: PREDNISOLONE
     Indication: URTICARIA
     Dosage: 20 MG, BID (TWICE DAILY)
     Route: 065

REACTIONS (4)
  - Nausea [Unknown]
  - Off label use [Unknown]
  - Adrenal suppression [Unknown]
  - Product difficult to swallow [Unknown]
